FAERS Safety Report 10656969 (Version 2)
Quarter: 2015Q1

REPORT INFORMATION
  Report Type: Report from Study
  Country: PL (occurrence: PL)
  Receive Date: 20141217
  Receipt Date: 20150115
  Transmission Date: 20150720
  Serious: Yes (Hospitalization, Other)
  Sender: FDA-Public Use
  Company Number: PHHY2014PL162030

PATIENT
  Age: 62 Year
  Sex: Female
  Weight: 60 kg

DRUGS (8)
  1. LOPERAMIDE [Concomitant]
     Active Substance: LOPERAMIDE
     Indication: PRODUCT USED FOR UNKNOWN INDICATION
     Dosage: 3 DF, BID
     Route: 065
  2. BETALOC ZOK ^ASTRA^ [Concomitant]
     Active Substance: METOPROLOL SUCCINATE
     Indication: PRODUCT USED FOR UNKNOWN INDICATION
     Dosage: 25 MG, QD
     Route: 065
  3. HUMALOG [Concomitant]
     Active Substance: INSULIN LISPRO
     Indication: PRODUCT USED FOR UNKNOWN INDICATION
     Route: 065
  4. TULIP (ATORVASTATIN) [Concomitant]
     Indication: PRODUCT USED FOR UNKNOWN INDICATION
     Dosage: 10 MG, QD
     Route: 065
  5. AFINITOR [Suspect]
     Active Substance: EVEROLIMUS
     Indication: PANCREATIC CARCINOMA
     Dosage: 10 MG, UNK
     Route: 065
     Dates: start: 20130423
  6. HUMAPENT [Concomitant]
     Indication: PRODUCT USED FOR UNKNOWN INDICATION
     Route: 065
  7. AMLOPIN [Concomitant]
     Active Substance: AMLODIPINE BESYLATE
     Indication: PRODUCT USED FOR UNKNOWN INDICATION
     Dosage: 5 MG, UNK
     Route: 065
  8. KALIPOZ [Concomitant]
     Active Substance: POTASSIUM CHLORIDE
     Indication: PRODUCT USED FOR UNKNOWN INDICATION
     Dosage: 3 DF, QD
     Route: 065

REACTIONS (15)
  - Wheezing [Unknown]
  - Nausea [Not Recovered/Not Resolved]
  - Cough [Unknown]
  - Crepitations [Unknown]
  - Weight decreased [Recovered/Resolved]
  - Fatigue [Unknown]
  - Onychoclasis [Not Recovered/Not Resolved]
  - Pyrexia [Unknown]
  - Hypoxia [Unknown]
  - Blood cholesterol increased [Not Recovered/Not Resolved]
  - Mucosal inflammation [Recovering/Resolving]
  - Lung disorder [Unknown]
  - Skin exfoliation [Not Recovered/Not Resolved]
  - Pneumonia [Recovered/Resolved]
  - Malaise [Unknown]

NARRATIVE: CASE EVENT DATE: 201309
